FAERS Safety Report 5254687-4 (Version None)
Quarter: 2007Q1

REPORT INFORMATION
  Report Type: 
  Country: None (occurrence: None)
  Receive Date: 20070227
  Receipt Date: 20070220
  Transmission Date: 20070707
  Serious: Yes (Death)
  Sender: FDA-Public Use
  Company Number: 226659

PATIENT
  Age: 51 Year
  Sex: Female
  Weight: 74.4 kg

DRUGS (12)
  1. RITUXAN [Suspect]
     Indication: RHEUMATOID ARTHRITIS
     Dosage: 500 MG, DAYS 1 + 15, INTRAVENOUS
     Route: 042
     Dates: start: 20060323
  2. INSULIN PUMP (INSULIN) [Concomitant]
  3. PREDNISONE TAB [Concomitant]
  4. METHOTREXATE [Concomitant]
  5. FOLIC ACID [Concomitant]
  6. METOPROLOL TARTRATE [Concomitant]
  7. CAPTOPRIL [Concomitant]
  8. CRESTOR [Concomitant]
  9. PLAVIX [Concomitant]
  10. ENTERIC COATED ASPIRIN (ASPIRIN) [Concomitant]
  11. ALPHAGAN P [Concomitant]
  12. FOSAMAX [Concomitant]

REACTIONS (2)
  - PERICARDITIS CONSTRICTIVE [None]
  - THROMBOSIS [None]
